FAERS Safety Report 9712908 (Version 2)
Quarter: 2013Q4

REPORT INFORMATION
  Report Type: Report from Study
  Country: CA (occurrence: CA)
  Receive Date: 20131126
  Receipt Date: 20131204
  Transmission Date: 20140711
  Serious: Yes (Other)
  Sender: FDA-Public Use
  Company Number: CA-JNJFOC-20131108673

PATIENT
  Age: 19 Year
  Sex: Female
  Weight: 58.4 kg

DRUGS (6)
  1. REMICADE [Suspect]
     Indication: CROHN^S DISEASE
     Dosage: 13 INFUSIONS TILL DATE
     Route: 042
     Dates: start: 20131126
  2. REMICADE [Suspect]
     Indication: CROHN^S DISEASE
     Route: 042
     Dates: start: 20131112
  3. REMICADE [Suspect]
     Indication: CROHN^S DISEASE
     Route: 042
     Dates: start: 20120404
  4. ELAVIL [Concomitant]
     Route: 065
  5. BIRTH CONTROL PILL [Concomitant]
     Route: 048
  6. FLAGYL [Concomitant]
     Dosage: FOR FURTHER 2 WEEKS
     Route: 065

REACTIONS (9)
  - Rectal abscess [Not Recovered/Not Resolved]
  - Fistula [Not Recovered/Not Resolved]
  - Erythema [Recovered/Resolved]
  - Pain [Not Recovered/Not Resolved]
  - Flushing [Recovering/Resolving]
  - Feeling hot [Recovering/Resolving]
  - Sensation of foreign body [Recovered/Resolved]
  - Dyspnoea [Recovered/Resolved]
  - Infusion related reaction [Recovered/Resolved]
